FAERS Safety Report 4872541-4 (Version None)
Quarter: 2006Q1

REPORT INFORMATION
  Report Type: 
  Country: None (occurrence: None)
  Receive Date: 20060105
  Receipt Date: 20051228
  Transmission Date: 20060701
  Serious: Yes (Hospitalization)
  Sender: FDA-Public Use
  Company Number: GB-JNJFOC-20051205512

PATIENT
  Age: 56 Year
  Sex: Female
  Weight: 79 kg

DRUGS (6)
  1. REMICADE [Suspect]
     Indication: RHEUMATOID ARTHRITIS
     Route: 042
  2. ENALAPRIL [Concomitant]
     Indication: HYPERTENSION
     Route: 048
  3. METHOTREXATE [Concomitant]
     Indication: RHEUMATOID ARTHRITIS
     Route: 048
  4. MELOXICAM [Concomitant]
     Indication: RHEUMATOID ARTHRITIS
     Route: 065
  5. PREDNISOLONE [Concomitant]
     Indication: RHEUMATOID ARTHRITIS
     Route: 048
  6. ASPIRIN [Concomitant]
     Indication: HYPERTENSION
     Route: 048

REACTIONS (2)
  - SKIN NECROSIS [None]
  - STAPHYLOCOCCAL ABSCESS [None]
